FAERS Safety Report 5247575-0 (Version None)
Quarter: 2007Q1

REPORT INFORMATION
  Report Type: 
  Country: None (occurrence: None)
  Receive Date: 20070223
  Receipt Date: 20070223
  Transmission Date: 20070707
  Serious: No
  Sender: FDA-Public Use
  Company Number: None

PATIENT
  Age: 64 Year
  Sex: Male

DRUGS (7)
  1. LEVAQUIN [Suspect]
     Dates: start: 20050624, end: 20050703
  2. ATENOLOL [Concomitant]
  3. DOXAZOCIN [Concomitant]
  4. NEXIUM [Concomitant]
  5. INSULIN [Concomitant]
  6. LISINOPRIL [Concomitant]
  7. TAMSULOSIN HCL [Concomitant]

REACTIONS (2)
  - HEPATITIS C [None]
  - LIVER INJURY [None]
